FAERS Safety Report 8588487-4 (Version None)
Quarter: 2012Q3

REPORT INFORMATION
  Report Type: 
  Country: None (occurrence: None)
  Receive Date: 20120813
  Receipt Date: 20120803
  Transmission Date: 20120928
  Serious: Yes (Other)
  Sender: FDA-Public Use
  Company Number: CA-JNJFOC-20120801859

PATIENT
  Sex: Female
  Weight: 47 kg

DRUGS (5)
  1. REMICADE [Suspect]
     Indication: COLITIS ULCERATIVE
     Route: 042
     Dates: start: 20120720
  2. REMICADE [Suspect]
     Route: 042
     Dates: start: 20120803
  3. REMICADE [Suspect]
     Dosage: HAD 2 DOSES
     Route: 042
     Dates: start: 20080101
  4. CITALOPRAM HYDROBROMIDE [Concomitant]
     Route: 065
  5. IMURAN [Concomitant]
     Route: 065

REACTIONS (6)
  - DYSPNOEA [None]
  - OEDEMA PERIPHERAL [None]
  - URTICARIA [None]
  - RASH [None]
  - INFUSION RELATED REACTION [None]
  - HEART RATE INCREASED [None]
